FAERS Safety Report 24331388 (Version 2)
Quarter: 2024Q3

REPORT INFORMATION
  Report Type: Spontaneous
  Country: US (occurrence: US)
  Receive Date: 20240918
  Receipt Date: 20240924
  Transmission Date: 20241017
  Serious: No
  Sender: JOHNSON AND JOHNSON
  Company Number: US-JNJFOC-20240934448

PATIENT
  Sex: Male

DRUGS (2)
  1. SPRAVATO [Suspect]
     Active Substance: ESKETAMINE
     Indication: Major depression
     Dosage: 20/JUN/2024
     Dates: start: 20240617, end: 20240624
  2. SPRAVATO [Suspect]
     Active Substance: ESKETAMINE
     Dosage: 01/JUL/2024, 03/JUL/2024, 09/JUL/2024, 17/JUL/2024, 29/JUL/2024, 05/AUG/2024, 12/AUG/2024, 19/AUG/20
     Dates: start: 20240627, end: 20240826

REACTIONS (4)
  - Product dose omission issue [Unknown]
  - Mental disorder [Unknown]
  - Depression [Unknown]
  - Decreased activity [Not Recovered/Not Resolved]
